FAERS Safety Report 6218089-6 (Version None)
Quarter: 2009Q2

REPORT INFORMATION
  Report Type: 
  Country: None (occurrence: None)
  Receive Date: 20090608
  Receipt Date: 20090528
  Transmission Date: 20091009
  Serious: Yes (Hospitalization)
  Sender: FDA-Public Use
  Company Number: US-BAXTER-2009BH005194

PATIENT
  Age: 63 Year
  Sex: Female
  Weight: 105 kg

DRUGS (11)
  1. ARALAST [Suspect]
     Indication: INBORN ERROR OF METABOLISM
     Route: 042
     Dates: start: 20090101, end: 20090201
  2. ARALAST [Suspect]
     Route: 042
     Dates: start: 20081201, end: 20081201
  3. PROAIR HFA [Concomitant]
  4. LEXAPRO [Concomitant]
  5. FENOFIBRATE [Concomitant]
  6. AVALIDE [Concomitant]
  7. DETROL [Concomitant]
  8. XYZAL [Concomitant]
  9. NASONEX [Concomitant]
     Dates: start: 20090201
  10. MOTRIN [Concomitant]
  11. MELOXICAM [Concomitant]

REACTIONS (4)
  - EXTERNAL EAR PAIN [None]
  - SINUSITIS [None]
  - TEMPORAL ARTERITIS [None]
  - VOMITING [None]
